FAERS Safety Report 7635033-5 (Version None)
Quarter: 2011Q3

REPORT INFORMATION
  Report Type: 
  Country: None (occurrence: None)
  Receive Date: 20110718
  Receipt Date: 20110710
  Transmission Date: 20111222
  Serious: Yes (Other)
  Sender: FDA-Public Use
  Company Number: 2011SP029159

PATIENT
  Sex: Female

DRUGS (4)
  1. ORGALUTRAN [Concomitant]
  2. PUREGON (FOLLITROPIN BETA /01348901/) [Suspect]
     Dates: start: 20110608, end: 20110618
  3. SYNAREL [Concomitant]
  4. PUREGON (FOLLITROPIN BETA /01348901/) [Suspect]
     Indication: INFERTILITY
     Dosage: QD
     Dates: start: 20110407, end: 20110415

REACTIONS (3)
  - MATERNAL EXPOSURE BEFORE PREGNANCY [None]
  - PREGNANCY [None]
  - HYPERSENSITIVITY [None]
